FAERS Safety Report 9432815 (Version 1)
Quarter: 2013Q3

REPORT INFORMATION
  Report Type: Spontaneous
  Country: JP (occurrence: JP)
  Receive Date: 20130731
  Receipt Date: 20130731
  Transmission Date: 20140515
  Serious: Yes (Hospitalization)
  Sender: FDA-Public Use
  Company Number: JP-VERTEX PHARMACEUTICALS INC-2013-008410

PATIENT
  Age: 66 Year
  Sex: Male

DRUGS (1)
  1. TELAVIC [Suspect]
     Route: 048

REACTIONS (1)
  - Pneumonia [Unknown]
